FAERS Safety Report 5676829-9 (Version None)
Quarter: 2008Q1

REPORT INFORMATION
  Report Type: 
  Country: None (occurrence: None)
  Receive Date: 20080324
  Receipt Date: 20080219
  Transmission Date: 20080703
  Serious: No
  Sender: FDA-Public Use
  Company Number: US-BAYER-200815172NA

PATIENT
  Age: 49 Year
  Sex: Female

DRUGS (2)
  1. YAZ [Suspect]
     Indication: HORMONE LEVEL ABNORMAL
     Route: 048
     Dates: start: 20080101
  2. OVER THE COUNTER FOR ALLERGIES [Concomitant]
     Indication: MULTIPLE ALLERGIES

REACTIONS (2)
  - THERMAL BURN [None]
  - WITHDRAWAL BLEEDING IRREGULAR [None]
